FAERS Safety Report 9387604 (Version 2)
Quarter: 2013Q3

REPORT INFORMATION
  Report Type: Report from Study
  Country: AU (occurrence: AU)
  Receive Date: 20130708
  Receipt Date: 20130728
  Transmission Date: 20140515
  Serious: Yes (Hospitalization)
  Sender: FDA-Public Use
  Company Number: PHHY2013AU072107

PATIENT
  Sex: Female

DRUGS (1)
  1. ACLASTA [Suspect]
     Dosage: 5 MG
     Route: 042
     Dates: start: 20120705

REACTIONS (1)
  - Cerebral thrombosis [Recovering/Resolving]
